FAERS Safety Report 24657791 (Version 1)
Quarter: 2024Q4

REPORT INFORMATION
  Report Type: Spontaneous
  Country: US (occurrence: US)
  Receive Date: 20241125
  Receipt Date: 20241125
  Transmission Date: 20250114
  Serious: No
  Sender: DR REDDYS
  Company Number: US-DRL-USA-SPO/USA/24/0016967

PATIENT
  Age: 61 Year
  Sex: Male

DRUGS (1)
  1. METOPROLOL SUCCINATE [Suspect]
     Active Substance: METOPROLOL SUCCINATE
     Indication: Heart rate irregular
     Dosage: EXTENDED-RELEASE TABLETS
     Route: 048
     Dates: start: 20241111

REACTIONS (2)
  - Pruritus [Unknown]
  - Rash [Unknown]
